FAERS Safety Report 11966246 (Version 1)
Quarter: 2016Q1

REPORT INFORMATION
  Report Type: Spontaneous
  Country: US (occurrence: US)
  Receive Date: 20160127
  Receipt Date: 20160127
  Transmission Date: 20160526
  Serious: No
  Sender: FDA-Public Use
  Company Number: US-SEPTODONT-201502779

PATIENT
  Age: 65 Year
  Sex: Female

DRUGS (5)
  1. CITANEST PLAIN [Suspect]
     Active Substance: PRILOCAINE HYDROCHLORIDE
     Indication: LOCAL ANAESTHESIA
     Dosage: 2 CARTRIDGES
     Route: 004
     Dates: start: 20150224, end: 20150224
  2. MARCAINE [Suspect]
     Active Substance: BUPIVACAINE HYDROCHLORIDE
     Indication: LOCAL ANAESTHESIA
     Dosage: 3 CARTRIDGES
     Route: 004
     Dates: start: 20150224, end: 20150224
  3. ENALAPRIL [Concomitant]
     Active Substance: ENALAPRIL
  4. LEVOTHYROXINE. [Concomitant]
     Active Substance: LEVOTHYROXINE
  5. ARTICAINE 4% WITH EPINEPHRINE [Suspect]
     Active Substance: ARTICAINE\EPINEPHRINE
     Indication: LOCAL ANAESTHESIA
     Dosage: 4 CARTRIDGES
     Route: 004
     Dates: start: 20150224, end: 20150224

REACTIONS (1)
  - Swelling face [Unknown]

NARRATIVE: CASE EVENT DATE: 20150224
